FAERS Safety Report 6110322-4 (Version None)
Quarter: 2009Q1

REPORT INFORMATION
  Report Type: 
  Country: None (occurrence: None)
  Receive Date: 20090310
  Receipt Date: 20081209
  Transmission Date: 20090719
  Serious: Yes (Other)
  Sender: FDA-Public Use
  Company Number: US-PFIZER INC-2008156245

PATIENT
  Sex: Female
  Weight: 59.41 kg

DRUGS (2)
  1. CHANTIX [Suspect]
     Indication: SMOKING CESSATION THERAPY
     Dates: start: 20081101, end: 20081101
  2. METHOTREXATE [Concomitant]
     Indication: PSORIASIS

REACTIONS (1)
  - EXFOLIATIVE RASH [None]
